FAERS Safety Report 13423939 (Version 1)
Quarter: 2017Q2

REPORT INFORMATION
  Report Type: Report from Study
  Country: CA (occurrence: CA)
  Receive Date: 20170410
  Receipt Date: 20170410
  Transmission Date: 20170830
  Serious: Yes (Hospitalization, Other)
  Sender: FDA-Public Use
  Company Number: CA-AMGEN-CANSL2017050665

PATIENT
  Age: 76 Year
  Sex: Female

DRUGS (33)
  1. SPIRIVA [Concomitant]
     Active Substance: TIOTROPIUM BROMIDE MONOHYDRATE
     Dosage: 18 MUG, QD
  2. SOFLAX [Concomitant]
     Active Substance: DOCUSATE
     Dosage: 100 MG, BID
  3. POTASSIUM [Concomitant]
     Active Substance: POTASSIUM
  4. CIPRALEX [Concomitant]
     Active Substance: ESCITALOPRAM OXALATE
     Dosage: 20 MG, UNK
  5. ZOPICLONE [Concomitant]
     Active Substance: ZOPICLONE
     Dosage: 7.5 MG, UNK
  6. WELLBUTRIN [Concomitant]
     Active Substance: BUPROPION HYDROCHLORIDE
     Dosage: 150 MG, UNK
  7. CALCIUM MAGNESIUM [Concomitant]
     Active Substance: CALCIUM\MAGNESIUM
     Dosage: 333 MG, UNK
  8. VITAMIN D3 [Concomitant]
     Active Substance: CHOLECALCIFEROL
     Dosage: 2000 IU, QD
  9. ADVAIR HFA [Concomitant]
     Active Substance: FLUTICASONE PROPIONATE\SALMETEROL XINAFOATE
     Dosage: 500 MUG, BID
  10. RATIO-SALBUTAMOL [Concomitant]
     Indication: ASTHMA
     Dosage: 100 MUG, AS NECESSARY
  11. LIPITOR [Concomitant]
     Active Substance: ATORVASTATIN CALCIUM
     Dosage: 20 MG (3 TABLET AT BEDTIME)
  12. BIOTIN [Concomitant]
     Active Substance: BIOTIN
     Dosage: 1000 MUG, UNK
  13. PROLIA [Suspect]
     Active Substance: DENOSUMAB
     Indication: OSTEOPOROSIS
     Dosage: 60 MG, Q6MO
     Route: 065
  14. FUROSEMIDE. [Concomitant]
     Active Substance: FUROSEMIDE
     Dosage: 40 MG, UNK
  15. RANITIDINE. [Concomitant]
     Active Substance: RANITIDINE
     Dosage: 175 MG, BID
  16. SINGULAIR [Concomitant]
     Active Substance: MONTELUKAST SODIUM
     Dosage: 1 DF, QD
  17. VITAMIN A [Concomitant]
     Active Substance: VITAMIN A
  18. ZINC. [Concomitant]
     Active Substance: ZINC
     Dosage: 50 MG, UNK
  19. FERROUS GLUCONATE [Concomitant]
     Active Substance: FERROUS GLUCONATE
     Dosage: 1 MG, TID
  20. TARO-WARFARIN [Concomitant]
     Active Substance: WARFARIN
     Dosage: 5 MG, QD
  21. ATROVENT HFA [Concomitant]
     Active Substance: IPRATROPIUM BROMIDE
     Indication: ASTHMA
     Dosage: 20 MUG, AS NECESSARY
  22. PHENOBARBITAL. [Concomitant]
     Active Substance: PHENOBARBITAL
     Dosage: 3 MG (2 TAB), TID
  23. OXYCOCET [Concomitant]
     Active Substance: ACETAMINOPHEN\OXYCODONE HYDROCHLORIDE
     Indication: PAIN
     Dosage: 5/325 MG, AS NECESSARY
  24. APO DILTIAZEM [Concomitant]
     Dosage: 240 MG, BID
  25. RATIO-FENTANYL [Concomitant]
     Active Substance: FENTANYL
     Dosage: 50 MUG (Q3D), UNK
  26. CALCIUM [Concomitant]
     Active Substance: CALCIUM
     Dosage: 600 UNK, BID
  27. VITAMIN D [Concomitant]
     Active Substance: CHOLECALCIFEROL
     Dosage: 400 IU, BID
  28. COUMADIN [Concomitant]
     Active Substance: WARFARIN SODIUM
     Indication: PRODUCT USED FOR UNKNOWN INDICATION
     Dosage: UNK
     Route: 065
  29. SYNTHROID [Concomitant]
     Active Substance: LEVOTHYROXINE SODIUM
     Dosage: 0.075 MG, UNK
  30. FOLIC ACID. [Concomitant]
     Active Substance: FOLIC ACID
     Dosage: 5 MG, QWK
  31. WARFARIN [Concomitant]
     Active Substance: WARFARIN
     Dosage: 1 MG (2.5 TABS), AS NECESSARY
  32. MULTIVITAMIN [Concomitant]
     Active Substance: VITAMINS
  33. GLUCOSAMINE [Concomitant]
     Active Substance: GLUCOSAMINE
     Dosage: 500 MG, UNK

REACTIONS (6)
  - Haematoma [Not Recovered/Not Resolved]
  - Road traffic accident [Unknown]
  - Viral myocarditis [Unknown]
  - Cardiac output decreased [Unknown]
  - Crush injury [Unknown]
  - Cardiac fibrillation [Recovered/Resolved]

NARRATIVE: CASE EVENT DATE: 201701
